FAERS Safety Report 21544635 (Version 1)
Quarter: 2022Q4

REPORT INFORMATION
  Report Type: Spontaneous
  Country: US (occurrence: None)
  Receive Date: 20221101
  Receipt Date: 20221101
  Transmission Date: 20230113
  Serious: Yes (Hospitalization, Other)
  Sender: FDA-Public Use
  Company Number: None

PATIENT
  Age: 58 Year
  Sex: Male

DRUGS (1)
  1. OLANZAPINE [Suspect]
     Active Substance: OLANZAPINE
     Indication: Depression
     Dosage: FREQUENCY : AT BEDTIME;?
     Route: 048
     Dates: end: 20220711

REACTIONS (11)
  - Blindness [None]
  - Heart rate irregular [None]
  - Night sweats [None]
  - Dehydration [None]
  - Dizziness [None]
  - Confusional state [None]
  - Anxiety [None]
  - Depression [None]
  - Tremor [None]
  - Diabetes mellitus [None]
  - Pancreatic disorder [None]

NARRATIVE: CASE EVENT DATE: 20220210
